FAERS Safety Report 11884678 (Version 1)
Quarter: 2016Q1

REPORT INFORMATION
  Report Type: Spontaneous
  Country: US (occurrence: US)
  Receive Date: 20160104
  Receipt Date: 20160104
  Transmission Date: 20160526
  Serious: Yes (Hospitalization)
  Sender: FDA-Public Use
  Company Number: US-HOSPIRA-2669648

PATIENT

DRUGS (1)
  1. ROCURONIUM BROMIDE. [Suspect]
     Active Substance: ROCURONIUM BROMIDE
     Indication: NEUROMUSCULAR BLOCKING THERAPY
     Dosage: NOT REPORTED, NOT REPORTED
     Dates: start: 20141112

REACTIONS (1)
  - Neuromuscular block prolonged [Recovered/Resolved]

NARRATIVE: CASE EVENT DATE: 20141112
